FAERS Safety Report 26156836 (Version 1)
Quarter: 2025Q4

REPORT INFORMATION
  Report Type: Report from Study
  Country: AU (occurrence: AU)
  Receive Date: 20251215
  Receipt Date: 20251215
  Transmission Date: 20260118
  Serious: Yes (Hospitalization)
  Sender: PANACEA BIOTEC PHARMA LIMITED
  Company Number: AU-PBT-011160

PATIENT
  Age: 58 Year
  Sex: Female

DRUGS (6)
  1. TACROLIMUS [Suspect]
     Active Substance: TACROLIMUS
     Indication: Autoimmune hepatitis
     Route: 065
  2. MYCOPHENOLATE MOFETIL [Suspect]
     Active Substance: MYCOPHENOLATE MOFETIL
     Indication: Autoimmune hepatitis
     Route: 065
     Dates: start: 2018
  3. URSODIOL [Suspect]
     Active Substance: URSODIOL
     Indication: Autoimmune hepatitis
     Route: 065
     Dates: start: 2018
  4. URSODIOL [Suspect]
     Active Substance: URSODIOL
     Indication: Hepatic cirrhosis
     Route: 065
     Dates: start: 2018
  5. MYCOPHENOLATE MOFETIL [Suspect]
     Active Substance: MYCOPHENOLATE MOFETIL
     Indication: Hepatic cirrhosis
     Route: 065
     Dates: start: 2018
  6. TACROLIMUS [Suspect]
     Active Substance: TACROLIMUS
     Indication: Hepatic cirrhosis
     Route: 065

REACTIONS (5)
  - Product use in unapproved indication [Unknown]
  - Therapy partial responder [Unknown]
  - Drug ineffective [Unknown]
  - Drug intolerance [Unknown]
  - Treatment noncompliance [Unknown]
